FAERS Safety Report 24990525 (Version 2)
Quarter: 2025Q2

REPORT INFORMATION
  Report Type: Spontaneous
  Country: US (occurrence: US)
  Receive Date: 20250220
  Receipt Date: 20250408
  Transmission Date: 20250716
  Serious: Yes (Hospitalization)
  Sender: NOVARTIS
  Company Number: US-002147023-NVSC2025US025163

PATIENT
  Age: 7 Month

DRUGS (2)
  1. ZOLGENSMA [Suspect]
     Active Substance: ONASEMNOGENE ABEPARVOVEC-XIOI
     Indication: Spinal muscular atrophy
     Route: 042
     Dates: start: 20250114, end: 20250114
  2. PREDNISOLONE [Concomitant]
     Active Substance: PREDNISOLONE
     Indication: Liver function test increased
     Dosage: 2 ML, BID( WILL CONTINUE TILL LIVER LABS NORMALIZE
     Route: 065
     Dates: start: 20250226

REACTIONS (5)
  - Pyrexia [Recovered/Resolved]
  - Influenza A virus test positive [Unknown]
  - Liver function test increased [Recovered/Resolved]
  - Aspartate aminotransferase increased [Recovered/Resolved]
  - Alanine aminotransferase increased [Recovered/Resolved]

NARRATIVE: CASE EVENT DATE: 20250210
